FAERS Safety Report 6068539-3 (Version None)
Quarter: 2009Q1

REPORT INFORMATION
  Report Type: 
  Country: None (occurrence: None)
  Receive Date: 20090206
  Receipt Date: 20090130
  Transmission Date: 20090719
  Serious: Yes (Hospitalization, Other)
  Sender: FDA-Public Use
  Company Number: US-BIOGENIDEC-2009BI003378

PATIENT
  Age: 26 Year
  Sex: Female
  Weight: 102 kg

DRUGS (4)
  1. AVONEX [Suspect]
     Indication: MULTIPLE SCLEROSIS
     Route: 030
     Dates: start: 19980202, end: 19980301
  2. ZOLOFT [Concomitant]
     Indication: DRUG USE FOR UNKNOWN INDICATION
  3. DEPAKOTE [Concomitant]
     Indication: DRUG USE FOR UNKNOWN INDICATION
  4. SEROQUEL [Concomitant]
     Indication: DRUG USE FOR UNKNOWN INDICATION

REACTIONS (9)
  - ANXIETY [None]
  - BIPOLAR DISORDER [None]
  - EPILEPSY [None]
  - FATIGUE [None]
  - INFLUENZA LIKE ILLNESS [None]
  - MAJOR DEPRESSION [None]
  - MENTAL DISORDER [None]
  - SCHIZOPHRENIA [None]
  - WEIGHT INCREASED [None]
